FAERS Safety Report 9155725 (Version 1)
Quarter: 2013Q1

REPORT INFORMATION
  Report Type: Spontaneous
  Country: BR (occurrence: BR)
  Receive Date: 20130311
  Receipt Date: 20130311
  Transmission Date: 20140127
  Serious: Yes (Other)
  Sender: FDA-Public Use
  Company Number: PHHY2013BR023617

PATIENT
  Age: 60 None
  Sex: Female
  Weight: 92 kg

DRUGS (5)
  1. DIOVAN TRIPLE [Suspect]
     Indication: HYPERTENSION
     Dosage: 1 DF, (160 MG VALS/ 5 MG AMLO/12,5 MG HYDRO) DAILY
     Route: 048
     Dates: start: 201207
  2. NPH-INSULIN [Concomitant]
     Indication: DIABETES MELLITUS
     Dosage: 40 IU, IN THE MORNING, DAILY
     Route: 058
  3. INSULIN RAPID [Concomitant]
     Indication: DIABETES MELLITUS
     Dosage: 10 IU, IN THE MORNING DAILY
     Route: 058
  4. GLUCOFORMIN [Concomitant]
     Indication: DIABETES MELLITUS
     Dosage: 1 G, IN THE MORNING AND AT NIGHT
     Route: 048
  5. CRESTOR [Concomitant]
     Indication: BLOOD CHOLESTEROL INCREASED
     Dosage: 10 MG, AT NIGHT
     Route: 048

REACTIONS (4)
  - Ovarian cancer [Not Recovered/Not Resolved]
  - Hepatic neoplasm [Not Recovered/Not Resolved]
  - Gastritis [Not Recovered/Not Resolved]
  - Hypotension [Recovering/Resolving]
